FAERS Safety Report 8786144 (Version 1)
Quarter: 2012Q4

REPORT INFORMATION
  Report Type: 
  Country: US (occurrence: US)
  Receive Date: 20120914
  Receipt Date: 20120914
  Transmission Date: 20130627
  Serious: No
  Sender: FDA-Public Use
  Company Number: US-B.I. PHARMACEUTICALS,INC./RIDGEFIELD-2012-BP-22231BP

PATIENT
  Sex: Female
  Weight: 145 kg

DRUGS (13)
  1. SPIRIVA [Suspect]
     Indication: CHRONIC OBSTRUCTIVE PULMONARY DISEASE
     Dosage: 18 mcg
     Route: 055
     Dates: start: 2008
  2. SPIRIVA [Suspect]
     Route: 048
  3. BACLOFEN [Concomitant]
     Indication: MUSCLE SPASMS
     Route: 048
     Dates: start: 2011
  4. ROXICODONE [Concomitant]
     Indication: PAIN
     Route: 048
     Dates: start: 2010
  5. AMBIEN [Concomitant]
     Indication: SLEEP DISORDER
     Dosage: 10 mg
     Route: 048
     Dates: start: 2011
  6. ADVAIR [Concomitant]
     Indication: CHRONIC OBSTRUCTIVE PULMONARY DISEASE
     Dosage: 2 puf
     Route: 055
     Dates: start: 2008
  7. ADVAIR [Concomitant]
     Indication: ASTHMA
  8. ADVAIR [Concomitant]
     Indication: EMPHYSEMA
  9. VENTOLIN HFA [Concomitant]
     Indication: CHRONIC OBSTRUCTIVE PULMONARY DISEASE
     Dosage: 8 puf
     Route: 055
     Dates: start: 2011
  10. VENTOLIN HFA [Concomitant]
     Indication: ASTHMA
  11. VENTOLIN HFA [Concomitant]
     Indication: EMPHYSEMA
  12. VICODAN [Concomitant]
     Indication: PAIN
     Route: 048
     Dates: start: 2002
  13. TRAMADOL [Concomitant]
     Indication: PAIN
     Route: 048
     Dates: start: 2005

REACTIONS (1)
  - Incorrect route of drug administration [Recovered/Resolved]
